FAERS Safety Report 8046526-3 (Version None)
Quarter: 2012Q1

REPORT INFORMATION
  Report Type: 
  Country: None (occurrence: None)
  Receive Date: 20120113
  Receipt Date: 20120104
  Transmission Date: 20120608
  Serious: Yes (Other)
  Sender: FDA-Public Use
  Company Number: US-ASTRAZENECA-2011SE37489

PATIENT
  Age: 76 Year
  Sex: Female

DRUGS (3)
  1. CRESTOR [Suspect]
     Route: 048
  2. NEXIUM [Suspect]
     Route: 048
  3. PRILOSEC [Suspect]
     Route: 048

REACTIONS (5)
  - DRUG INEFFECTIVE [None]
  - BLOOD CHOLESTEROL INCREASED [None]
  - CARDIAC FAILURE CONGESTIVE [None]
  - LOW DENSITY LIPOPROTEIN INCREASED [None]
  - MALAISE [None]
